FAERS Safety Report 5195013-9 (Version None)
Quarter: 2006Q4

REPORT INFORMATION
  Report Type: 
  Country: None (occurrence: None)
  Receive Date: 20061229
  Receipt Date: 20061221
  Transmission Date: 20070319
  Serious: Yes (Life-Threatening, Hospitalization)
  Sender: FDA-Public Use
  Company Number: GB-BRISTOL-MYERS SQUIBB COMPANY-13621156

PATIENT
  Age: 34 Year
  Sex: Female
  Weight: 55 kg

DRUGS (7)
  1. PACLITAXEL [Suspect]
     Dates: start: 20061213, end: 20061213
  2. GEMCITABINE [Suspect]
     Dates: start: 20061213, end: 20061213
  3. GRANISETRON [Concomitant]
     Indication: NAUSEA
     Route: 048
     Dates: start: 20061213, end: 20061215
  4. DEXAMETHASONE [Concomitant]
     Indication: NAUSEA
     Route: 048
     Dates: start: 20061214, end: 20061215
  5. DEXAMETHASONE [Concomitant]
     Route: 042
     Dates: start: 20061213, end: 20061213
  6. CHLORPHENIRAMINE MALEATE [Concomitant]
     Indication: ANTIALLERGIC THERAPY
     Route: 042
     Dates: start: 20061213, end: 20061213
  7. RANITIDINE [Concomitant]
     Indication: DYSPEPSIA
     Route: 042
     Dates: start: 20061213

REACTIONS (6)
  - ABDOMINAL PAIN [None]
  - COLITIS [None]
  - CONSTIPATION [None]
  - HYPOTENSION [None]
  - NEUTROPENIA [None]
  - PYREXIA [None]
